FAERS Safety Report 9587569 (Version 2)
Quarter: 2013Q4

REPORT INFORMATION
  Report Type: Report from Study
  Country: US (occurrence: US)
  Receive Date: 20131003
  Receipt Date: 20131007
  Transmission Date: 20140711
  Serious: Yes (Death, Other)
  Sender: FDA-Public Use
  Company Number: US-TEVA-435651USA

PATIENT
  Sex: Male

DRUGS (2)
  1. CLOZAPINE [Suspect]
     Indication: DEMENTIA
     Route: 048
  2. CLOZAPINE [Suspect]
     Indication: DELUSION

REACTIONS (1)
  - Death [Fatal]
